FAERS Safety Report 6737721-1 (Version None)
Quarter: 2010Q2

REPORT INFORMATION
  Report Type: 
  Country: None (occurrence: None)
  Receive Date: 20100524
  Receipt Date: 20100512
  Transmission Date: 20101027
  Serious: Yes (Other)
  Sender: FDA-Public Use
  Company Number: PHHY2010DE31525

PATIENT
  Sex: Male

DRUGS (4)
  1. ZOMETA [Suspect]
     Dosage: UNK
     Route: 042
     Dates: start: 20050101
  2. SYNTESTAN [Concomitant]
     Dosage: UNK
     Dates: start: 19940101
  3. PULMICORT [Concomitant]
     Dosage: UNK
     Dates: start: 19940101
  4. CHEMOTHERAPEUTICS NOS [Concomitant]

REACTIONS (6)
  - BONE DEBRIDEMENT [None]
  - DENTURE WEARER [None]
  - OSTEONECROSIS OF JAW [None]
  - PRIMARY SEQUESTRUM [None]
  - SEQUESTRECTOMY [None]
  - TOOTH EXTRACTION [None]
